FAERS Safety Report 6900434-7 (Version None)
Quarter: 2010Q3

REPORT INFORMATION
  Report Type: 
  Country: None (occurrence: None)
  Receive Date: 20100803
  Receipt Date: 20100722
  Transmission Date: 20110219
  Serious: Yes (Other)
  Sender: FDA-Public Use
  Company Number: US-PFIZER INC-2010074449

PATIENT
  Sex: Female
  Weight: 110.2 kg

DRUGS (13)
  1. CHANTIX [Suspect]
     Indication: SMOKING CESSATION THERAPY
     Dosage: 0.5 MG, 1X/DAY
     Route: 048
     Dates: start: 20100603
  2. CHANTIX [Suspect]
     Dosage: UNK MG, UNK
     Route: 048
  3. PAXIL [Concomitant]
     Indication: DEPRESSION
     Dosage: 80 MG, 1X/DAY
     Route: 048
  4. NEXIUM [Concomitant]
     Indication: DYSPEPSIA
     Dosage: 40 MG, 1X/DAY
     Route: 048
  5. VYTORIN [Concomitant]
     Indication: BLOOD CHOLESTEROL ABNORMAL
     Dosage: [EZETIMIBE 10MG]/[SIMVASTATIN 40MG] DAILY
     Route: 048
  6. VYTORIN [Concomitant]
     Indication: BLOOD TRIGLYCERIDES ABNORMAL
  7. LOVAZA [Concomitant]
     Dosage: UNK
     Route: 048
  8. CENTRUM [Concomitant]
     Dosage: UNK
  9. XANAX [Concomitant]
     Indication: SLEEP DISORDER
     Dosage: 2 MG, 1X/DAY
     Route: 048
  10. XANAX [Concomitant]
     Indication: PANIC ATTACK
  11. IBUPROFEN [Concomitant]
     Indication: HEADACHE
     Dosage: UNK
  12. ALBUTEROL SULFATE [Concomitant]
     Indication: DYSPNOEA
     Dosage: UNK
     Route: 055
  13. METFORMIN [Concomitant]
     Indication: DIABETES MELLITUS
     Dosage: 1000 MG, 2X/DAY
     Route: 048

REACTIONS (8)
  - ANGER [None]
  - EMOTIONAL DISORDER [None]
  - FEELING ABNORMAL [None]
  - HERPES ZOSTER [None]
  - MOOD ALTERED [None]
  - PRURITUS [None]
  - RASH [None]
  - SWELLING [None]
